FAERS Safety Report 24072542 (Version 1)
Quarter: 2024Q3

REPORT INFORMATION
  Report Type: Spontaneous
  Country: FR (occurrence: US)
  Receive Date: 20240710
  Receipt Date: 20240710
  Transmission Date: 20241016
  Serious: No
  Sender: APOTEX
  Company Number: FR-APOTEX-2024AP007850

PATIENT
  Age: 4 Year
  Sex: Female

DRUGS (3)
  1. LEVOFLOXACIN [Suspect]
     Active Substance: LEVOFLOXACIN
     Indication: Product used for unknown indication
     Dosage: UNK
     Route: 048
  2. MUPIROCIN [Concomitant]
     Active Substance: MUPIROCIN
     Indication: Fusarium infection
     Dosage: UNK
     Route: 061
  3. HYDROCORTISONE [Concomitant]
     Active Substance: HYDROCORTISONE\HYDROCORTISONE ACETATE
     Indication: Fusarium infection
     Dosage: UNK
     Route: 065

REACTIONS (1)
  - Drug intolerance [Unknown]
